FAERS Safety Report 8263914-0 (Version None)
Quarter: 2012Q2

REPORT INFORMATION
  Report Type: 
  Country: None (occurrence: None)
  Receive Date: 20120406
  Receipt Date: 20120327
  Transmission Date: 20120825
  Serious: Yes (Life-Threatening, Hospitalization, Other)
  Sender: FDA-Public Use
  Company Number: JP-BRISTOL-MYERS SQUIBB COMPANY-16376279

PATIENT
  Age: 82 Year
  Sex: Female

DRUGS (26)
  1. METFORMIN HCL [Suspect]
     Indication: DIABETES MELLITUS
     Route: 048
     Dates: start: 20110518
  2. SIGMART [Concomitant]
     Route: 048
  3. ZYRTEC [Concomitant]
     Route: 048
  4. UBRETID [Concomitant]
     Route: 048
  5. NIFLAN [Concomitant]
  6. MAGNESIUM SULFATE [Concomitant]
     Indication: CONSTIPATION
     Route: 048
  7. MUCODYNE [Concomitant]
     Route: 048
  8. PRAVASTATIN SODIUM [Concomitant]
     Route: 048
  9. GASMOTIN [Concomitant]
     Route: 048
  10. BIFONAZOLE [Concomitant]
  11. WARFARIN SODIUM [Concomitant]
     Route: 048
  12. KETOPROFEN [Concomitant]
     Dosage: MOHRUS TAPE L
  13. LANIRAPID [Suspect]
     Route: 048
  14. OLMESARTAN MEDOXOMIL [Concomitant]
     Route: 048
  15. FORSENID [Concomitant]
     Route: 048
  16. JUVELA [Concomitant]
  17. PAXIL [Concomitant]
     Route: 048
  18. AMARYL [Concomitant]
     Route: 048
  19. NOVORAPID [Concomitant]
     Route: 058
  20. LANSOPRAZOLE [Concomitant]
     Route: 048
  21. DIFLUCORTOLONE VALERATE [Concomitant]
  22. FUROSEMIDE [Concomitant]
     Route: 048
  23. SPIRONOLACTONE [Concomitant]
     Route: 048
  24. POLYCARBOPHIL CALCIUM [Concomitant]
     Indication: IRRITABLE BOWEL SYNDROME
     Route: 048
  25. LANTUS [Concomitant]
     Route: 058
  26. AMITRIPTYLINE HCL [Concomitant]
     Route: 048

REACTIONS (5)
  - CARDIAC ARREST [None]
  - LACTIC ACIDOSIS [None]
  - VENTRICULAR FLUTTER [None]
  - VENTRICULAR TACHYCARDIA [None]
  - RENAL IMPAIRMENT [None]
